FAERS Safety Report 8850526 (Version 2)
Quarter: 2012Q4

REPORT INFORMATION
  Report Type: 
  Country: US (occurrence: US)
  Receive Date: 20121019
  Receipt Date: 20121214
  Transmission Date: 20130627
  Serious: No
  Sender: FDA-Public Use
  Company Number: US-US-EMD SERONO, INC.-7167844

PATIENT
  Sex: Female

DRUGS (5)
  1. REBIF [Suspect]
     Indication: MULTIPLE SCLEROSIS
     Route: 058
     Dates: start: 200805
  2. TRAMADOL [Concomitant]
     Indication: ARTHRALGIA
  3. CYMBALTA [Concomitant]
     Indication: ARTHRITIS
  4. CARISOPRODOL [Concomitant]
     Indication: MUSCLE SPASMS
     Dosage: and as needed
  5. WARFARIN [Concomitant]
     Indication: EMBOLISM

REACTIONS (4)
  - Contusion [Recovered/Resolved]
  - Ligament sprain [Recovered/Resolved]
  - Sinusitis [Not Recovered/Not Resolved]
  - Intervertebral disc protrusion [Not Recovered/Not Resolved]
